FAERS Safety Report 10016322 (Version 2)
Quarter: 2014Q2

REPORT INFORMATION
  Report Type: Spontaneous
  Country: US (occurrence: US)
  Receive Date: 20140317
  Receipt Date: 20140403
  Transmission Date: 20141212
  Serious: No
  Sender: FDA-Public Use
  Company Number: US-PFIZER INC-2014073321

PATIENT
  Age: 65 Year
  Sex: Female
  Weight: 81.63 kg

DRUGS (9)
  1. ATORVASTATIN CALCIUM [Suspect]
     Indication: BLOOD CHOLESTEROL INCREASED
     Dosage: 20 MG, 1X/DAY
     Dates: start: 20140224
  2. TEGRETOL [Concomitant]
     Indication: NEUROPATHY PERIPHERAL
     Dosage: 200 MG, 1X/DAY
  3. TEGRETOL [Concomitant]
     Indication: TRIGEMINAL NEURALGIA
  4. FLEXERIL [Concomitant]
     Indication: BACK DISORDER
     Dosage: 10 MG, AS NEEDED
  5. AMLODIPINE [Concomitant]
     Indication: HYPERTENSION
     Dosage: 10 MG, 1X/DAY
  6. LOSARTAN/ HYDROCHLORTHIAZIDE [Concomitant]
     Indication: HYPERTENSION
     Dosage: [LOSARTAN 100 MG]/ [HYDROCHLOROTHIAZIDE 25 MG], 1X/DAY
  7. CLONAZEPAM [Concomitant]
     Indication: ANXIETY
     Dosage: 2 MG, AS NEEDED
  8. VITAMIN D [Concomitant]
     Dosage: 50000 IU, WEEKLY
  9. LEVOTHYROXINE [Concomitant]
     Indication: HYPOTHYROIDISM
     Dosage: 75 UG, 1X/DAY

REACTIONS (1)
  - Muscle spasms [Unknown]
